FAERS Safety Report 16596504 (Version 3)
Quarter: 2019Q4

REPORT INFORMATION
  Report Type: Spontaneous
  Country: US (occurrence: US)
  Receive Date: 20190719
  Receipt Date: 20191024
  Transmission Date: 20200122
  Serious: Yes (Hospitalization)
  Sender: FDA-Public Use
  Company Number: US-ROCHE-2357121

PATIENT
  Age: 68 Year
  Sex: Male
  Weight: 88.98 kg

DRUGS (8)
  1. ATORVASTATIN [Concomitant]
     Active Substance: ATORVASTATIN
     Route: 048
  2. SINGULAIR [Concomitant]
     Active Substance: MONTELUKAST SODIUM
     Route: 048
  3. XOLAIR [Suspect]
     Active Substance: OMALIZUMAB
     Indication: CHRONIC SPONTANEOUS URTICARIA
     Dosage: 150MG/ML PFS INJ?SUBCUTANEOUS OMALIZUMAB IN EACH ARM 2 DOSES ON 20/MAY/2019 TO 20/JUN/2019.
     Route: 058
     Dates: start: 201906
  4. XOLAIR [Suspect]
     Active Substance: OMALIZUMAB
     Route: 058
     Dates: start: 20190626
  5. XOLAIR [Suspect]
     Active Substance: OMALIZUMAB
     Dosage: 150MG/ML PFS INJ
     Route: 058
     Dates: start: 20190620, end: 20190626
  6. XARELTO [Concomitant]
     Active Substance: RIVAROXABAN
     Route: 048
  7. CANDESARTAN. [Concomitant]
     Active Substance: CANDESARTAN
     Route: 048
  8. VITAMIN D3 [Concomitant]
     Active Substance: CHOLECALCIFEROL
     Route: 048

REACTIONS (5)
  - Thrombosis [Unknown]
  - Syncope [Unknown]
  - Fatigue [Unknown]
  - Muscle fatigue [Unknown]
  - Deep vein thrombosis [Recovering/Resolving]

NARRATIVE: CASE EVENT DATE: 20190713
